FAERS Safety Report 23063338 (Version 3)
Quarter: 2023Q4

REPORT INFORMATION
  Report Type: Spontaneous
  Country: US (occurrence: US)
  Receive Date: 20231013
  Receipt Date: 20231221
  Transmission Date: 20240109
  Serious: No
  Sender: FDA-Public Use
  Company Number: US-BAYER-2023A140019

PATIENT
  Age: 56 Year
  Sex: Male

DRUGS (3)
  1. BETASERON [Suspect]
     Active Substance: INTERFERON BETA-1B
     Dosage: UNK
  2. BETASERON [Suspect]
     Active Substance: INTERFERON BETA-1B
     Dosage: UNK
  3. DEVICE [Suspect]
     Active Substance: DEVICE
     Dosage: UNK

REACTIONS (4)
  - Incorrect dose administered [None]
  - Scar [None]
  - Wrong technique in product usage process [None]
  - Device use issue [None]
